FAERS Safety Report 24935325 (Version 2)
Quarter: 2025Q1

REPORT INFORMATION
  Report Type: Spontaneous
  Country: US (occurrence: US)
  Receive Date: 20250206
  Receipt Date: 20250331
  Transmission Date: 20250408
  Serious: Yes (Hospitalization, Other)
  Sender: CSL BEHRING
  Company Number: US-BEH-2025194333

PATIENT
  Age: 62 Year
  Sex: Female

DRUGS (4)
  1. PRIVIGEN [Suspect]
     Active Substance: HUMAN IMMUNOGLOBULIN G
     Indication: Polyneuropathy
     Route: 042
     Dates: start: 202410
  2. PRIVIGEN [Suspect]
     Active Substance: HUMAN IMMUNOGLOBULIN G
     Route: 065
     Dates: start: 202412
  3. SODIUM CHLORIDE [Concomitant]
     Active Substance: SODIUM CHLORIDE
  4. HEPARIN [Concomitant]
     Active Substance: HEPARIN SODIUM

REACTIONS (5)
  - Meningitis [Unknown]
  - Migraine [Unknown]
  - Headache [Unknown]
  - Neck pain [Unknown]
  - Off label use [Unknown]

NARRATIVE: CASE EVENT DATE: 20250114
